FAERS Safety Report 25432381 (Version 2)
Quarter: 2025Q2

REPORT INFORMATION
  Report Type: Spontaneous
  Country: GB (occurrence: GB)
  Receive Date: 20250613
  Receipt Date: 20250619
  Transmission Date: 20250716
  Serious: Yes (Other)
  Sender: NOVO NORDISK
  Company Number: GB-NOVOPROD-1454111

PATIENT
  Age: 61 Year
  Sex: Male

DRUGS (1)
  1. WEGOVY [Suspect]
     Active Substance: SEMAGLUTIDE
     Indication: Product used for unknown indication

REACTIONS (3)
  - Atrial fibrillation [Unknown]
  - Condition aggravated [Unknown]
  - Heart rate increased [Unknown]
